FAERS Safety Report 6652673-0 (Version None)
Quarter: 2010Q1

REPORT INFORMATION
  Report Type: 
  Country: None (occurrence: None)
  Receive Date: 20100326
  Receipt Date: 20100317
  Transmission Date: 20100710
  Serious: No
  Sender: FDA-Public Use
  Company Number: US-BAYER-201013678NA

PATIENT
  Age: 30 Year
  Sex: Female
  Weight: 159 kg

DRUGS (1)
  1. MIRENA [Suspect]
     Indication: CONTRACEPTION
     Dosage: FREQUENCY CONTINUOUS
     Route: 015
     Dates: start: 20090312, end: 20100201

REACTIONS (1)
  - PREGNANCY WITH CONTRACEPTIVE DEVICE [None]
